FAERS Safety Report 5283977-4 (Version None)
Quarter: 2007Q2

REPORT INFORMATION
  Report Type: 
  Country: None (occurrence: None)
  Receive Date: 20070402
  Receipt Date: 20070326
  Transmission Date: 20071010
  Serious: Yes (Other)
  Sender: FDA-Public Use
  Company Number: DZ-PFIZER INC-2007014866

PATIENT
  Age: 75 Year
  Sex: Male

DRUGS (3)
  1. XALATAN [Suspect]
     Indication: GLAUCOMA
  2. VOLTAREN [Suspect]
     Indication: TENDON RUPTURE
     Route: 054
  3. NSAID'S [Concomitant]

REACTIONS (1)
  - INTRAOCULAR PRESSURE INCREASED [None]
